FAERS Safety Report 5325853-4 (Version None)
Quarter: 2007Q2

REPORT INFORMATION
  Report Type: 
  Country: None (occurrence: None)
  Receive Date: 20070502
  Receipt Date: 20070416
  Transmission Date: 20071010
  Serious: Yes (Life-Threatening, Hospitalization)
  Sender: FDA-Public Use
  Company Number: GAM-128-06-FR

PATIENT
  Age: 55 Year
  Sex: Male

DRUGS (6)
  1. OCTAGAM [Suspect]
     Indication: HYPOGAMMAGLOBULINAEMIA
     Dosage: 25 G I.V.
     Route: 042
     Dates: start: 20061009, end: 20061009
  2. OCTAGAM [Suspect]
  3. OCTAGAM [Suspect]
  4. LASIX [Concomitant]
  5. HYDROCORTISONE (HYDROCORTISONE) [Concomitant]
  6. POLARAMINE [Concomitant]

REACTIONS (14)
  - ASPARTATE AMINOTRANSFERASE INCREASED [None]
  - BLOOD ALKALINE PHOSPHATASE INCREASED [None]
  - CHOLESTASIS [None]
  - DIARRHOEA [None]
  - ELECTROCARDIOGRAM REPOLARISATION ABNORMALITY [None]
  - LEFT VENTRICULAR HYPERTROPHY [None]
  - LIVER DISORDER [None]
  - MALAISE [None]
  - MYOCARDITIS [None]
  - OEDEMA PERIPHERAL [None]
  - PAIN [None]
  - PERICARDIAL EFFUSION [None]
  - PLEURAL EFFUSION [None]
  - VOMITING [None]
